FAERS Safety Report 8811081 (Version 1)
Quarter: 2012Q4

REPORT INFORMATION
  Report Type: Spontaneous
  Country: US (occurrence: None)
  Receive Date: 20120925
  Receipt Date: 20120925
  Transmission Date: 20130627
  Serious: Yes (Life-Threatening)
  Sender: FDA-Public Use
  Company Number: None

PATIENT
  Age: 62 Year
  Sex: Female
  Weight: 54.43 kg

DRUGS (1)
  1. GASTROGRAFIN MEGLAMINE SODIUM [Suspect]
     Indication: GASTROINTESTINAL SCAN
     Dosage: One bottle Once I drank it.
     Dates: start: 20120116

REACTIONS (3)
  - Loss of consciousness [None]
  - Vomiting [None]
  - Faecal incontinence [None]
